FAERS Safety Report 10751708 (Version 2)
Quarter: 2015Q1

REPORT INFORMATION
  Report Type: Spontaneous
  Country: GR (occurrence: GR)
  Receive Date: 20150130
  Receipt Date: 20150218
  Transmission Date: 20150721
  Serious: Yes (Hospitalization)
  Sender: FDA-Public Use
  Company Number: PHHY2015GR008982

PATIENT
  Sex: Male

DRUGS (1)
  1. GILENYA [Suspect]
     Active Substance: FINGOLIMOD HYDROCHLORIDE
     Indication: MULTIPLE SCLEROSIS
     Dosage: 0.5 MG, UNK
     Route: 065
     Dates: start: 20150113

REACTIONS (6)
  - Hiccups [Recovered/Resolved]
  - Altered state of consciousness [Recovered/Resolved]
  - Lymphocyte count decreased [Recovered/Resolved]
  - Viral infection [Recovered/Resolved]
  - Influenza [Unknown]
  - Pyrexia [Recovered/Resolved]
